FAERS Safety Report 5736535-9 (Version None)
Quarter: 2008Q2

REPORT INFORMATION
  Report Type: 
  Country: None (occurrence: None)
  Receive Date: 20080513
  Receipt Date: 20080509
  Transmission Date: 20081010
  Serious: Yes (Death)
  Sender: FDA-Public Use
  Company Number: BR-BRISTOL-MYERS SQUIBB COMPANY-14187843

PATIENT

DRUGS (4)
  1. HYDROXYUREA [Suspect]
     Indication: POLYCYTHAEMIA VERA
  2. INTERFERON [Suspect]
  3. BUSULFAN [Suspect]
  4. ACETYLSALICYLIC ACID SRT [Suspect]

REACTIONS (1)
  - DEATH [None]
